FAERS Safety Report 5197411-6 (Version None)
Quarter: 2006Q4

REPORT INFORMATION
  Report Type: 
  Country: None (occurrence: None)
  Receive Date: 20060928
  Receipt Date: 20050914
  Transmission Date: 20070319
  Serious: Yes (Other)
  Sender: FDA-Public Use
  Company Number: HQWYE506316SEP05

PATIENT
  Age: 77 Year
  Sex: Male
  Weight: 90.8 kg

DRUGS (4)
  1. RAPAMUNE [Suspect]
     Indication: LIVER TRANSPLANT
     Dosage: 1 MG 1X PER 1 DAY, ORAL
     Route: 048
     Dates: start: 20000317
  2. CELLCEPT [Concomitant]
  3. VALSARTAN [Concomitant]
  4. METOPROLOL TARTRATE [Concomitant]

REACTIONS (2)
  - DIARRHOEA [None]
  - NEUROENDOCRINE CARCINOMA OF THE SKIN [None]
